FAERS Safety Report 15432748 (Version 12)
Quarter: 2024Q1

REPORT INFORMATION
  Report Type: Other
  Country: AT (occurrence: None)
  Receive Date: 20180927
  Receipt Date: 20240215
  Transmission Date: 20240410
  Serious: Yes (Hospitalization)
  Sender: FDA-Public Use
  Company Number: AT-ROCHE-2188858

PATIENT
  Age: 58 Year
  Sex: Female
  Weight: 75 kg

DRUGS (30)
  1. HERCEPTIN [Suspect]
     Active Substance: TRASTUZUMAB
     Indication: HER2 positive breast cancer
     Route: 041
     Dates: start: 20170321, end: 20170523
  2. HERCEPTIN [Suspect]
     Active Substance: TRASTUZUMAB
     Route: 042
     Dates: start: 20170606, end: 20180104
  3. HERCEPTIN [Suspect]
     Active Substance: TRASTUZUMAB
     Route: 042
     Dates: start: 20180220, end: 20180220
  4. HERCEPTIN [Suspect]
     Active Substance: TRASTUZUMAB
     Route: 042
     Dates: start: 20180314, end: 20180629
  5. HERCEPTIN [Suspect]
     Active Substance: TRASTUZUMAB
     Route: 042
     Dates: start: 20180720, end: 20180831
  6. HERCEPTIN [Suspect]
     Active Substance: TRASTUZUMAB
     Indication: HER2 positive breast cancer
     Route: 058
     Dates: start: 20180126, end: 20180126
  7. PERJETA [Suspect]
     Active Substance: PERTUZUMAB
     Indication: HER2 positive breast cancer
     Route: 042
     Dates: start: 20170321, end: 20170523
  8. PERJETA [Suspect]
     Active Substance: PERTUZUMAB
     Route: 042
     Dates: start: 20170606, end: 20180104
  9. PERJETA [Suspect]
     Active Substance: PERTUZUMAB
     Route: 042
     Dates: start: 20180314, end: 20180831
  10. TAXOL [Suspect]
     Active Substance: PACLITAXEL
     Indication: HER2 positive breast cancer
     Route: 042
     Dates: start: 20170321, end: 20170523
  11. TAXOL [Suspect]
     Active Substance: PACLITAXEL
     Route: 042
     Dates: start: 20170606, end: 20170620
  12. XGEVA [Concomitant]
     Active Substance: DENOSUMAB
     Dates: start: 20170613
  13. DEXIBUPROFEN [Concomitant]
     Active Substance: DEXIBUPROFEN
     Indication: Musculoskeletal pain
     Dates: start: 20170919
  14. CITALOPRAM [Concomitant]
     Active Substance: CITALOPRAM HYDROBROMIDE
  15. DIMENHYDRINATE [Concomitant]
     Active Substance: DIMENHYDRINATE
     Dates: start: 20171023
  16. ZOFRAN [Concomitant]
     Active Substance: ONDANSETRON HYDROCHLORIDE
     Indication: Subileus
     Dates: start: 20170923
  17. ZOFRAN [Concomitant]
     Active Substance: ONDANSETRON HYDROCHLORIDE
     Dates: start: 20180819, end: 20180819
  18. GUTTALAX [Concomitant]
     Dates: start: 20171023
  19. POLYETHYLENE GLYCOL 3350\POTASSIUM CHLORIDE\SODIUM BICARBONATE\SODIUM [Concomitant]
     Active Substance: POLYETHYLENE GLYCOL 3350\POTASSIUM CHLORIDE\SODIUM BICARBONATE\SODIUM CHLORIDE
     Dates: start: 20171023
  20. HALDOL [Concomitant]
     Active Substance: HALOPERIDOL
     Dates: start: 20171023
  21. NORGESIC (AUSTRIA) [Concomitant]
  22. PANCRELIPASE [Concomitant]
     Active Substance: PANCRELIPASE
     Indication: Gastroenteritis radiation
     Dates: start: 20180215
  23. LYRICA [Concomitant]
     Active Substance: PREGABALIN
     Indication: Musculoskeletal pain
     Dates: start: 20180129
  24. TRAMADOL [Concomitant]
     Active Substance: TRAMADOL\TRAMADOL HYDROCHLORIDE
     Dates: start: 20180425
  25. NEXIUM [Concomitant]
     Active Substance: ESOMEPRAZOLE MAGNESIUM
     Indication: Gastroenteritis radiation
     Dates: start: 20180819, end: 20180819
  26. NEXIUM [Concomitant]
     Active Substance: ESOMEPRAZOLE MAGNESIUM
     Dosage: ONGOING = CHECKED
     Dates: start: 20180115
  27. CEOLAT [Concomitant]
  28. ENTEROCOCCUS FAECALIS [Concomitant]
     Active Substance: ENTEROCOCCUS FAECALIS
  29. NOVALGIN (AUSTRIA) [Concomitant]
     Indication: Abdominal pain upper
     Dates: start: 20180425, end: 20180818
  30. NOVALGIN (AUSTRIA) [Concomitant]
     Indication: Vomiting
     Dates: start: 20180909, end: 20180909

REACTIONS (3)
  - Subileus [Recovered/Resolved]
  - Vomiting [Recovered/Resolved]
  - Abdominal pain upper [Recovered/Resolved]

NARRATIVE: CASE EVENT DATE: 20180819
